FAERS Safety Report 8906438 (Version 1)
Quarter: 2012Q4

REPORT INFORMATION
  Report Type: Spontaneous
  Country: DK (occurrence: None)
  Receive Date: 20121107
  Receipt Date: 20121107
  Transmission Date: 20130627
  Serious: Yes (Life-Threatening)
  Sender: FDA-Public Use
  Company Number: 2012MA012880

PATIENT
  Sex: Female

DRUGS (2)
  1. CITALOPRAM HYDROBROMIDE [Suspect]
     Indication: DEPRESSION
     Route: 048
  2. ACETYLSALICYLIC ACID [Suspect]
     Indication: TRANSIENT ISCHEMIC ATTACK
     Route: 048

REACTIONS (2)
  - Rectal haemorrhage [None]
  - Drug interaction [None]
